FAERS Safety Report 9288485 (Version 1)
Quarter: 2013Q2

REPORT INFORMATION
  Report Type: Spontaneous
  Country: US (occurrence: US)
  Receive Date: 20130514
  Receipt Date: 20130514
  Transmission Date: 20140414
  Serious: Yes (Other)
  Sender: FDA-Public Use
  Company Number: PHHY2013US046057

PATIENT
  Age: 62 Year
  Sex: Male

DRUGS (2)
  1. AMLODIPINE [Suspect]
  2. ISOSORBIDE DINITRATE [Concomitant]

REACTIONS (4)
  - Cutaneous lupus erythematosus [Recovered/Resolved]
  - Skin plaque [Recovered/Resolved]
  - Rash erythematous [Recovered/Resolved]
  - Rash [Recovered/Resolved]
